FAERS Safety Report 10907076 (Version 1)
Quarter: 2015Q1

REPORT INFORMATION
  Report Type: Spontaneous
  Country: US (occurrence: None)
  Receive Date: 20150309
  Receipt Date: 20150309
  Transmission Date: 20150721
  Serious: Yes (Hospitalization)
  Sender: FDA-Public Use
  Company Number: None

PATIENT
  Age: 68 Year
  Sex: Female
  Weight: 57 kg

DRUGS (4)
  1. LEVOFLOXACIN. [Concomitant]
     Active Substance: LEVOFLOXACIN
  2. OTHER MAINTENANCE MEDICATIONS [Concomitant]
  3. TEDIZOLID PHOSPHATE [Suspect]
     Active Substance: TEDIZOLID PHOSPHATE
     Indication: SKIN INFECTION
     Route: 048
     Dates: start: 20150302, end: 20150302
  4. TEDIZOLID PHOSPHATE [Suspect]
     Active Substance: TEDIZOLID PHOSPHATE
     Indication: SOFT TISSUE INFECTION
     Route: 048
     Dates: start: 20150302, end: 20150302

REACTIONS (1)
  - Rash [None]

NARRATIVE: CASE EVENT DATE: 20150302
